FAERS Safety Report 12712688 (Version 4)
Quarter: 2016Q4

REPORT INFORMATION
  Report Type: Report from Study
  Country: US (occurrence: US)
  Receive Date: 20160902
  Receipt Date: 20161110
  Transmission Date: 20170207
  Serious: Yes (Hospitalization)
  Sender: FDA-Public Use
  Company Number: US-JNJFOC-20160825816

PATIENT
  Sex: Female

DRUGS (6)
  1. IBRUTINIB [Suspect]
     Active Substance: IBRUTINIB
     Indication: THERAPY NAIVE
     Dosage: 140 MG .QD; 28 DAY CYCLE
     Route: 048
     Dates: start: 20160817
  2. IBRUTINIB [Suspect]
     Active Substance: IBRUTINIB
     Indication: CHRONIC LYMPHOCYTIC LEUKAEMIA
     Dosage: 420 MG, QD; 28 DAY CYCLE
     Route: 048
     Dates: start: 20160801, end: 20160816
  3. IBRUTINIB [Suspect]
     Active Substance: IBRUTINIB
     Indication: THERAPY NAIVE
     Dosage: 420 MG, QD; 28 DAY CYCLE
     Route: 048
     Dates: start: 20160801, end: 20160816
  4. IBRUTINIB [Suspect]
     Active Substance: IBRUTINIB
     Indication: CHRONIC LYMPHOCYTIC LEUKAEMIA
     Dosage: 420 MG, QD; 28 DAY CYCLE
     Route: 048
     Dates: start: 20150115, end: 20160715
  5. IBRUTINIB [Suspect]
     Active Substance: IBRUTINIB
     Indication: THERAPY NAIVE
     Dosage: 420 MG, QD; 28 DAY CYCLE
     Route: 048
     Dates: start: 20150115, end: 20160715
  6. IBRUTINIB [Suspect]
     Active Substance: IBRUTINIB
     Indication: CHRONIC LYMPHOCYTIC LEUKAEMIA
     Dosage: 140 MG .QD; 28 DAY CYCLE
     Route: 048
     Dates: start: 20160817

REACTIONS (6)
  - Face oedema [Recovering/Resolving]
  - Hyponatraemia [Recovered/Resolved]
  - Lethargy [Recovered/Resolved]
  - Mouth haemorrhage [Recovering/Resolving]
  - Confusional state [Recovered/Resolved]
  - Muscular weakness [Recovered/Resolved]

NARRATIVE: CASE EVENT DATE: 20160716
